FAERS Safety Report 23874376 (Version 3)
Quarter: 2024Q2

REPORT INFORMATION
  Report Type: Spontaneous
  Country: US (occurrence: US)
  Receive Date: 20240520
  Receipt Date: 20240612
  Transmission Date: 20240716
  Serious: No
  Sender: FDA-Public Use
  Company Number: US-PFIZER INC-202400108003

PATIENT
  Age: 61 Year
  Sex: Female

DRUGS (1)
  1. CIBINQO [Suspect]
     Active Substance: ABROCITINIB
     Indication: Dermatitis
     Dosage: UNK
     Route: 048

REACTIONS (2)
  - Osteoporosis [Unknown]
  - Off label use [Unknown]
